FAERS Safety Report 13732983 (Version 1)
Quarter: 2017Q3

REPORT INFORMATION
  Report Type: Spontaneous
  Country: PT (occurrence: PT)
  Receive Date: 20170707
  Receipt Date: 20170707
  Transmission Date: 20171127
  Serious: Yes (Death)
  Sender: FDA-Public Use
  Company Number: PT-BIOMARINAP-PT-2017-114615

PATIENT
  Age: 51 Year
  Sex: Male

DRUGS (2)
  1. WARFARIN [Concomitant]
     Active Substance: WARFARIN
     Indication: PRODUCT USED FOR UNKNOWN INDICATION
  2. ALDURAZYME [Suspect]
     Active Substance: LARONIDASE
     Indication: MUCOPOLYSACCHARIDOSIS
     Dosage: UNK, QW
     Route: 041

REACTIONS (2)
  - Intraocular pressure increased [Unknown]
  - Sudden death [Fatal]

NARRATIVE: CASE EVENT DATE: 20170621
